FAERS Safety Report 9383933 (Version 3)
Quarter: 2013Q4

REPORT INFORMATION
  Report Type: Report from Study
  Country: CA (occurrence: CA)
  Receive Date: 20130705
  Receipt Date: 20131108
  Transmission Date: 20140711
  Serious: Yes (Hospitalization, Other)
  Sender: FDA-Public Use
  Company Number: CA-ROCHE-1215708

PATIENT
  Sex: Female
  Weight: 67.5 kg

DRUGS (26)
  1. RITUXAN [Suspect]
     Indication: RHEUMATOID ARTHRITIS
     Dosage: DAY1 AND 15
     Route: 042
     Dates: start: 20130321, end: 20130321
  2. RITUXAN [Suspect]
     Indication: CREST SYNDROME
  3. METHOTREXATE [Suspect]
     Indication: RHEUMATOID ARTHRITIS
     Route: 058
     Dates: end: 20130521
  4. METHOTREXATE [Suspect]
     Indication: CREST SYNDROME
  5. PREDNISONE [Concomitant]
     Indication: RHEUMATOID ARTHRITIS
     Route: 048
  6. LEUCOVORIN [Concomitant]
     Route: 065
  7. SULFASALAZINE [Concomitant]
     Indication: RHEUMATOID ARTHRITIS
     Dosage: 3 TABLETS
     Route: 048
  8. SULFASALAZINE [Concomitant]
     Indication: CREST SYNDROME
  9. PLAQUENIL [Concomitant]
     Indication: RHEUMATOID ARTHRITIS
     Dosage: DAILY DOSE
     Route: 065
  10. PLAQUENIL [Concomitant]
     Indication: CREST SYNDROME
  11. CALCIUM CARBONATE [Concomitant]
     Route: 048
  12. ALENDRONATE SODIUM [Concomitant]
     Route: 048
  13. AMITRIPTYLINE [Concomitant]
     Dosage: ONCE BEFORE BED
     Route: 048
  14. FLUOXETINE [Concomitant]
     Dosage: DAILY DOSE
     Route: 065
  15. ASA [Concomitant]
     Indication: CORONARY ARTERY DISEASE
     Route: 048
  16. ATORVASTATIN [Concomitant]
     Dosage: DAILY DOSE
     Route: 065
  17. BISOPROLOL [Concomitant]
     Route: 048
  18. NEXIUM [Concomitant]
     Route: 048
  19. DOMPERIDONE [Concomitant]
     Indication: GASTROOESOPHAGEAL REFLUX DISEASE
     Route: 048
  20. TOPIRAMATE [Concomitant]
     Route: 065
  21. VITAMIN B12 [Concomitant]
     Route: 048
  22. PLAVIX [Concomitant]
     Indication: CORONARY ARTERY DISEASE
     Route: 048
  23. DIPHENHYDRAMINE HCL [Concomitant]
     Indication: PREMEDICATION
     Route: 048
     Dates: start: 20130321
  24. ACETAMINOPHEN [Concomitant]
     Indication: PREMEDICATION
     Route: 048
     Dates: start: 20130321
  25. METHYLPREDNISOLONE [Concomitant]
     Indication: PREMEDICATION
     Route: 042
  26. ESOMEPRAZOLE [Concomitant]
     Route: 065

REACTIONS (3)
  - Bronchitis [Recovering/Resolving]
  - Lung infection [Not Recovered/Not Resolved]
  - Mycobacterial infection [Unknown]
